APPROVED DRUG PRODUCT: HIBICLENS
Active Ingredient: CHLORHEXIDINE GLUCONATE
Strength: 4%
Dosage Form/Route: SOLUTION;TOPICAL
Application: N017768 | Product #001
Applicant: MOLNLYCKE HEALTH CARE
Approved: Approved Prior to Jan 1, 1982 | RLD: Yes | RS: Yes | Type: OTC